FAERS Safety Report 25329630 (Version 1)
Quarter: 2025Q2

REPORT INFORMATION
  Report Type: Report from Study
  Country: US (occurrence: US)
  Receive Date: 20250519
  Receipt Date: 20250519
  Transmission Date: 20250716
  Serious: Yes (Other)
  Sender: ABBVIE
  Company Number: US-ABBVIE-6283065

PATIENT
  Sex: Male

DRUGS (1)
  1. SKYRIZI [Suspect]
     Active Substance: RISANKIZUMAB-RZAA
     Indication: Psoriasis
     Route: 058
     Dates: start: 20240607, end: 202501

REACTIONS (5)
  - Cardiac operation [Recovering/Resolving]
  - Coronary artery bypass [Recovering/Resolving]
  - Vascular procedure complication [Recovering/Resolving]
  - Procedural haemorrhage [Recovering/Resolving]
  - Psoriasis [Recovering/Resolving]
